FAERS Safety Report 16988822 (Version 3)
Quarter: 2019Q4

REPORT INFORMATION
  Report Type: Spontaneous
  Country: CO (occurrence: CO)
  Receive Date: 20191104
  Receipt Date: 20191122
  Transmission Date: 20200122
  Serious: Yes (Death)
  Sender: FDA-Public Use
  Company Number: CO-JNJFOC-20191046546

PATIENT
  Age: 80 Year
  Sex: Female

DRUGS (1)
  1. RIVAROXABAN [Suspect]
     Active Substance: RIVAROXABAN
     Indication: ATRIAL FIBRILLATION
     Dosage: 15 MG, UNK
     Route: 048

REACTIONS (5)
  - Labelled drug-disease interaction medication error [Unknown]
  - Contraindicated product administered [Unknown]
  - Incorrect dose administered [Unknown]
  - Hypovolaemic shock [Fatal]
  - Off label use [Unknown]

NARRATIVE: CASE EVENT DATE: 201910
